FAERS Safety Report 15037101 (Version 1)
Quarter: 2018Q2

REPORT INFORMATION
  Report Type: Spontaneous
  Country: US (occurrence: US)
  Receive Date: 20180530
  Receipt Date: 20180530
  Transmission Date: 20180711
  Serious: No
  Sender: FDA-Public Use
  Company Number: None

PATIENT

DRUGS (1)
  1. OLMESARTAN-HYDROCHLOROTHIAZIDE [Suspect]
     Active Substance: OLMESARTAN
     Indication: HYPERTENSION
     Route: 048

REACTIONS (4)
  - Urticaria [None]
  - Throat irritation [None]
  - Oropharyngeal pain [None]
  - Rash [None]
